FAERS Safety Report 7437933-8 (Version None)
Quarter: 2011Q2

REPORT INFORMATION
  Report Type: 
  Country: None (occurrence: None)
  Receive Date: 20110426
  Receipt Date: 20110412
  Transmission Date: 20111010
  Serious: Yes (Hospitalization)
  Sender: FDA-Public Use
  Company Number: JP-CELGENEUS-087-21660-11041970

PATIENT
  Sex: Female
  Weight: 43 kg

DRUGS (9)
  1. ABRAXANE [Suspect]
     Indication: BREAST CANCER METASTATIC
     Dosage: 380 MILLIGRAM
     Route: 050
     Dates: start: 20101110, end: 20101110
  2. NEUROTROPIN [Concomitant]
     Route: 048
     Dates: start: 20101110
  3. PYDOXAL [Concomitant]
     Route: 048
     Dates: start: 20101110
  4. FENTANYL [Concomitant]
     Route: 061
     Dates: start: 20101110
  5. SOLDEM 3 [Concomitant]
     Route: 051
  6. CELECOX [Concomitant]
     Route: 048
     Dates: start: 20101110
  7. LYRICA [Concomitant]
     Route: 065
     Dates: start: 20101209
  8. DUROTEP [Concomitant]
     Route: 065
     Dates: start: 20101110, end: 20101207
  9. METHYCOBAL [Concomitant]
     Route: 048
     Dates: start: 20101110

REACTIONS (3)
  - MALAISE [None]
  - DECREASED APPETITE [None]
  - PERIPHERAL SENSORY NEUROPATHY [None]
